FAERS Safety Report 19577500 (Version 1)
Quarter: 2021Q3

REPORT INFORMATION
  Report Type: Spontaneous
  Country: AU (occurrence: AU)
  Receive Date: 20210719
  Receipt Date: 20210719
  Transmission Date: 20211014
  Serious: Yes (Other)
  Sender: FDA-Public Use
  Company Number: AU-GLAXOSMITHKLINE-AU2021GSK153149

PATIENT
  Age: 40 Year
  Sex: Female

DRUGS (1)
  1. BUPROPION. [Suspect]
     Active Substance: BUPROPION
     Indication: TOBACCO USER
     Dosage: UNK
     Route: 048

REACTIONS (4)
  - Serotonin syndrome [Not Recovered/Not Resolved]
  - Headache [Not Recovered/Not Resolved]
  - Orgasm abnormal [Not Recovered/Not Resolved]
  - Crying [Not Recovered/Not Resolved]
